FAERS Safety Report 7374625-8 (Version None)
Quarter: 2011Q1

REPORT INFORMATION
  Report Type: 
  Country: None (occurrence: None)
  Receive Date: 20110325
  Receipt Date: 20100517
  Transmission Date: 20110831
  Serious: No
  Sender: FDA-Public Use
  Company Number: US-MYLANLABS-2010S1008866

PATIENT
  Age: 39 Year
  Sex: Female
  Weight: 41.73 kg

DRUGS (5)
  1. NEXIUM [Concomitant]
  2. ABILIFY [Concomitant]
  3. FENTANYL-100 [Suspect]
     Dosage: CHANGED Q72H
     Route: 062
     Dates: start: 20100101
  4. FENTANYL-100 [Suspect]
     Indication: GASTRITIS
     Dosage: Q72HRS
     Route: 062
     Dates: start: 20091101, end: 20100101
  5. LEXAPRO [Concomitant]

REACTIONS (2)
  - APPLICATION SITE PRURITUS [None]
  - HYPOAESTHESIA [None]
